FAERS Safety Report 5818379-2 (Version None)
Quarter: 2008Q3

REPORT INFORMATION
  Report Type: 
  Country: None (occurrence: None)
  Receive Date: 20080718
  Receipt Date: 20080709
  Transmission Date: 20090109
  Serious: Yes (Congenital Anomaly)
  Sender: FDA-Public Use
  Company Number: GXKR2008GB06418

PATIENT

DRUGS (1)
  1. METFORMIN HCL [Suspect]
     Dosage: TRANSPLACENTAL

REACTIONS (2)
  - DRUG EXPOSURE DURING PREGNANCY [None]
  - HOLOPROSENCEPHALY [None]
